FAERS Safety Report 8776193 (Version 6)
Quarter: 2013Q2

REPORT INFORMATION
  Report Type: Spontaneous
  Country: US (occurrence: US)
  Receive Date: 20120910
  Receipt Date: 20130402
  Transmission Date: 20140414
  Serious: Yes (Other)
  Sender: FDA-Public Use
  Company Number: US-PFIZER INC-2012221897

PATIENT
  Sex: Female

DRUGS (3)
  1. LYRICA [Suspect]
     Indication: HEADACHE
     Dosage: 75 MG
     Dates: start: 20050901, end: 20120907
  2. LYRICA [Suspect]
     Indication: FACIAL PAIN
  3. LIPITOR [Suspect]
     Dosage: UNK

REACTIONS (3)
  - Arthropathy [Unknown]
  - Limb discomfort [Unknown]
  - Cough [Unknown]
